FAERS Safety Report 11299818 (Version 1)
Quarter: 2015Q3

REPORT INFORMATION
  Report Type: Spontaneous
  Country: US (occurrence: US)
  Receive Date: 20150722
  Receipt Date: 20150722
  Transmission Date: 20151125
  Serious: No
  Sender: FDA-Public Use
  Company Number: US-ELI_LILLY_AND_COMPANY-US201303008433

PATIENT
  Sex: Male

DRUGS (2)
  1. HUMATROPE [Suspect]
     Active Substance: SOMATROPIN
     Dosage: 1.6 MG, QD
  2. HUMATROPE [Suspect]
     Active Substance: SOMATROPIN
     Indication: BLOOD GROWTH HORMONE DECREASED
     Dosage: 1.2 MG, UNK

REACTIONS (6)
  - Intentional product use issue [Unknown]
  - Growth retardation [Unknown]
  - Epistaxis [Unknown]
  - Arthralgia [Unknown]
  - Bronchitis viral [Unknown]
  - Headache [Unknown]
